FAERS Safety Report 5566381-0 (Version None)
Quarter: 2007Q4

REPORT INFORMATION
  Report Type: 
  Country: None (occurrence: None)
  Receive Date: 20071219
  Receipt Date: 20071127
  Transmission Date: 20080405
  Serious: Yes (Other)
  Sender: FDA-Public Use
  Company Number: DE-BAYER-200717796GPV

PATIENT
  Sex: Male

DRUGS (2)
  1. AVELOX [Suspect]
     Indication: BRONCHITIS BACTERIAL
     Route: 048
  2. CLARITHROMYCIN [Suspect]
     Indication: BRONCHITIS BACTERIAL
     Dosage: TOTAL DAILY DOSE: 500 MG
     Route: 048

REACTIONS (3)
  - BRONCHITIS BACTERIAL [None]
  - PSEUDOMEMBRANOUS COLITIS [None]
  - SINUSITIS [None]
